APPROVED DRUG PRODUCT: SOLIFENACIN SUCCINATE
Active Ingredient: SOLIFENACIN SUCCINATE
Strength: 5MG
Dosage Form/Route: TABLET;ORAL
Application: A213346 | Product #001
Applicant: SUNSHINE LAKE PHARMA CO LTD
Approved: Apr 13, 2020 | RLD: No | RS: No | Type: DISCN